FAERS Safety Report 10098752 (Version 1)
Quarter: 2014Q2

REPORT INFORMATION
  Report Type: Spontaneous
  Country: GB (occurrence: GB)
  Receive Date: 20140423
  Receipt Date: 20140423
  Transmission Date: 20141212
  Serious: Yes (Other)
  Sender: FDA-Public Use
  Company Number: GB-BAYER-2014-055370

PATIENT
  Age: 56 Year
  Sex: Female
  Weight: 60 kg

DRUGS (1)
  1. NAPROXEN SODIUM HIGH DOSE (} 220 MG) [Suspect]
     Indication: BURSITIS
     Dosage: 1000 MG, UNK
     Route: 048
     Dates: start: 20140324, end: 20140402

REACTIONS (3)
  - Oropharyngeal pain [Recovered/Resolved]
  - Dyspepsia [Recovered/Resolved]
  - Nausea [Recovered/Resolved]
